FAERS Safety Report 5192604-6 (Version None)
Quarter: 2006Q4

REPORT INFORMATION
  Report Type: 
  Country: None (occurrence: None)
  Receive Date: 20061220
  Receipt Date: 20061205
  Transmission Date: 20070319
  Serious: Yes (Hospitalization)
  Sender: FDA-Public Use
  Company Number: ENZ-2006-016

PATIENT
  Sex: Male

DRUGS (1)
  1. ULTRASE (PANCRELIPASE) MINITABLETS 20 [Suspect]
     Indication: CYSTIC FIBROSIS

REACTIONS (2)
  - ENZYME ABNORMALITY [None]
  - INTESTINAL OBSTRUCTION [None]
